FAERS Safety Report 9098847 (Version 1)
Quarter: 2013Q1

REPORT INFORMATION
  Report Type: Spontaneous
  Country: US (occurrence: US)
  Receive Date: 20130213
  Receipt Date: 20130213
  Transmission Date: 20140127
  Serious: No
  Sender: FDA-Public Use
  Company Number: US-MYLANLABS-2012S1021249

PATIENT
  Age: 38 Year
  Sex: Female

DRUGS (3)
  1. TRETINOIN [Suspect]
     Indication: SKIN DISCOLOURATION
     Route: 061
     Dates: start: 201207
  2. WELLBUTRIN [Concomitant]
     Dosage: DEPRESSION
  3. CALCIUM [Concomitant]

REACTIONS (1)
  - Headache [Not Recovered/Not Resolved]
